FAERS Safety Report 4422595-4 (Version None)
Quarter: 2004Q3

REPORT INFORMATION
  Report Type: 
  Country: None (occurrence: None)
  Receive Date: 20040810
  Receipt Date: 20040512
  Transmission Date: 20050211
  Serious: Yes (Death)
  Sender: FDA-Public Use
  Company Number: PHBS2004JP06396

PATIENT
  Age: 61 Year
  Sex: Male

DRUGS (2)
  1. CYCLOSPORINE [Suspect]
     Indication: PEMPHIGOID
     Route: 048
  2. STEROIDS NOS [Suspect]
     Indication: PEMPHIGOID
     Route: 048

REACTIONS (1)
  - DEATH [None]
